FAERS Safety Report 20882279 (Version 2)
Quarter: 2022Q2

REPORT INFORMATION
  Report Type: Report from Study
  Country: CO (occurrence: CO)
  Receive Date: 20220527
  Receipt Date: 20220608
  Transmission Date: 20220720
  Serious: Yes (Hospitalization, Other)
  Sender: FDA-Public Use
  Company Number: CO-BoehringerIngelheim-2022-BI-169690

PATIENT
  Age: 39 Year
  Sex: Female
  Weight: 65 kg

DRUGS (1)
  1. NINTEDANIB [Suspect]
     Active Substance: NINTEDANIB
     Indication: Idiopathic pulmonary fibrosis
     Route: 048
     Dates: start: 20210505

REACTIONS (6)
  - Accident [Unknown]
  - Lung perforation [Unknown]
  - Pleural injury [Unknown]
  - Nausea [Not Recovered/Not Resolved]
  - Drug intolerance [Unknown]
  - Vomiting [Not Recovered/Not Resolved]

NARRATIVE: CASE EVENT DATE: 20210505
